FAERS Safety Report 8935845 (Version 2)
Quarter: 2013Q1

REPORT INFORMATION
  Report Type: Spontaneous
  Country: BR (occurrence: BR)
  Receive Date: 20121130
  Receipt Date: 20130115
  Transmission Date: 20140127
  Serious: Yes (Other)
  Sender: FDA-Public Use
  Company Number: BR-ASTELLAS-2012US011511

PATIENT
  Age: 32 Year
  Sex: Female
  Weight: 87 kg

DRUGS (1)
  1. PROTOPIC [Suspect]
     Indication: EYELID IRRITATION
     Dosage: 0.1 %, BID
     Route: 061
     Dates: start: 20121120, end: 20121120

REACTIONS (3)
  - Off label use [Recovered/Resolved]
  - Eyelid irritation [Not Recovered/Not Resolved]
  - Application site pain [Not Recovered/Not Resolved]
